FAERS Safety Report 11448619 (Version 1)
Quarter: 2015Q3

REPORT INFORMATION
  Report Type: Report from Study
  Country: JP (occurrence: JP)
  Receive Date: 20150902
  Receipt Date: 20150902
  Transmission Date: 20151125
  Serious: Yes (Death, Life-Threatening, Hospitalization)
  Sender: FDA-Public Use
  Company Number: JP-CELGENE-JPN-2015023549

PATIENT
  Age: 75 Year
  Sex: Male
  Weight: 55 kg

DRUGS (6)
  1. VIDAZA [Suspect]
     Active Substance: AZACITIDINE
     Route: 058
     Dates: start: 20130225, end: 20130301
  2. BESTATIN [Concomitant]
     Indication: MYELODYSPLASTIC SYNDROME
     Route: 065
  3. EQUA [Concomitant]
     Active Substance: VILDAGLIPTIN
     Indication: MYELODYSPLASTIC SYNDROME
     Route: 065
  4. GLAKAY [Concomitant]
     Active Substance: MENATETRENONE
     Indication: MYELODYSPLASTIC SYNDROME
     Route: 065
  5. GRAN [Concomitant]
     Active Substance: FILGRASTIM
     Indication: MYELODYSPLASTIC SYNDROME
     Route: 065
     Dates: start: 20130128, end: 20130222
  6. VIDAZA [Suspect]
     Active Substance: AZACITIDINE
     Indication: MYELODYSPLASTIC SYNDROME
     Route: 058
     Dates: start: 20130128, end: 20130201

REACTIONS (2)
  - Cerebral haemorrhage [Fatal]
  - Febrile neutropenia [Recovered/Resolved]

NARRATIVE: CASE EVENT DATE: 20130330
